FAERS Safety Report 13506815 (Version 1)
Quarter: 2017Q2

REPORT INFORMATION
  Report Type: Spontaneous
  Country: IT (occurrence: IT)
  Receive Date: 20170502
  Receipt Date: 20170502
  Transmission Date: 20170830
  Serious: Yes (Hospitalization)
  Sender: FDA-Public Use
  Company Number: PHHY2017IT061143

PATIENT
  Age: 53 Year
  Sex: Female

DRUGS (5)
  1. LENTO-KALIUM [Suspect]
     Active Substance: POTASSIUM CHLORIDE
     Indication: DRUG USE DISORDER
     Dosage: 10 DF, UNK
     Route: 048
     Dates: start: 20170315, end: 20170315
  2. DIBASE [Suspect]
     Active Substance: CHOLECALCIFEROL
     Indication: DRUG USE DISORDER
     Dosage: 1 DF, UNK
     Route: 048
     Dates: start: 20170315, end: 20170315
  3. MOTILIUM [Suspect]
     Active Substance: DOMPERIDONE
     Indication: DRUG USE DISORDER
     Dosage: 30 DF, UNK
     Route: 048
     Dates: start: 20170315, end: 20170315
  4. ANSIOLIN [Suspect]
     Active Substance: DIAZEPAM
     Indication: DRUG USE DISORDER
     Dosage: 30 ML, UNK
     Route: 048
     Dates: start: 20170315, end: 20170315
  5. IBUPROFEN. [Suspect]
     Active Substance: IBUPROFEN
     Indication: DRUG USE DISORDER
     Dosage: 1 DF, UNK
     Route: 048
     Dates: start: 20170315, end: 20170315

REACTIONS (3)
  - Intentional self-injury [Recovered/Resolved]
  - Sopor [Recovered/Resolved]
  - Drug use disorder [Recovered/Resolved]

NARRATIVE: CASE EVENT DATE: 20170315
